FAERS Safety Report 5097369-4 (Version None)
Quarter: 2006Q3

REPORT INFORMATION
  Report Type: 
  Country: None (occurrence: None)
  Receive Date: 20060901
  Receipt Date: 20060822
  Transmission Date: 20061208
  Serious: Yes (Hospitalization)
  Sender: FDA-Public Use
  Company Number: 228632

PATIENT
  Age: 18 Year
  Sex: Female

DRUGS (6)
  1. XOLAIR [Suspect]
     Indication: ASTHMA
     Dosage: 150 MG
     Dates: start: 20060718, end: 20060718
  2. XOLAIR [Suspect]
     Indication: ASTHMA
     Dosage: 300 MG
     Dates: start: 20060801, end: 20060801
  3. SALBUTAMOL SULFATE (ALBUTEROL/ALBUTEROL SULFATE) [Concomitant]
  4. SYMBICORT (BUDESONIDE, FORMOTEROL FUMARATE) [Concomitant]
  5. RHINOCORT (BUDESNOIDE) [Concomitant]
  6. CONTINUOUS POSITIVE AIRWAY PRESSURE (RESPIRATORY TREATMENTS AND DEVICE [Concomitant]

REACTIONS (5)
  - HYPERTENSION [None]
  - MALAISE [None]
  - NAUSEA [None]
  - SYNCOPE [None]
  - TACHYCARDIA [None]
